FAERS Safety Report 10083524 (Version 1)
Quarter: 2014Q2

REPORT INFORMATION
  Report Type: Spontaneous
  Country: US (occurrence: None)
  Receive Date: 20140416
  Receipt Date: 20140416
  Transmission Date: 20141212
  Serious: Yes (Life-Threatening, Hospitalization, Disabling)
  Sender: FDA-Public Use
  Company Number: None

PATIENT
  Age: 29 Year
  Sex: Female
  Weight: 49.44 kg

DRUGS (1)
  1. TRI-SPRINTEC [Suspect]
     Indication: CONTRACEPTION
     Dosage: 1, ONCE DAILY, TAKEN BY MOUTH
     Route: 048
     Dates: start: 20121101, end: 20140110

REACTIONS (3)
  - Deep vein thrombosis [None]
  - Gait disturbance [None]
  - Joint range of motion decreased [None]
